FAERS Safety Report 4824386-9 (Version None)
Quarter: 2005Q4

REPORT INFORMATION
  Report Type: 
  Country: None (occurrence: None)
  Receive Date: 20051108
  Receipt Date: 20051024
  Transmission Date: 20060501
  Serious: Yes (Hospitalization, Other)
  Sender: FDA-Public Use
  Company Number: US_0508121376

PATIENT
  Age: 66 Year
  Sex: Male

DRUGS (5)
  1. HUMATROPE [Suspect]
     Dosage: 4 MG/KG DAY
     Dates: start: 20041216, end: 20050921
  2. TESTOSTERONE [Suspect]
     Dosage: 5 GB
     Dates: start: 20041216, end: 20050921
  3. SYNTHROID [Concomitant]
  4. HYDROCORTISONE [Concomitant]
  5. DDAVP (DESMOPRESSIN ACETATE) [Concomitant]

REACTIONS (3)
  - ANKLE FRACTURE [None]
  - FALL [None]
  - PROSTATE CANCER [None]
